FAERS Safety Report 16775797 (Version 2)
Quarter: 2019Q3

REPORT INFORMATION
  Report Type: Spontaneous
  Country: AT (occurrence: AT)
  Receive Date: 20190905
  Receipt Date: 20190920
  Transmission Date: 20191005
  Serious: Yes (Death, Life-Threatening, Hospitalization)
  Sender: FDA-Public Use
  Company Number: AT-ELI_LILLY_AND_COMPANY-AT201909001202

PATIENT
  Age: 65 Year
  Sex: Male

DRUGS (8)
  1. ABRAXANE [Suspect]
     Active Substance: PACLITAXEL
     Indication: NON-SMALL CELL LUNG CANCER
     Dosage: 200 MG, UNKNOWN
     Route: 065
     Dates: start: 20190627
  2. ABRAXANE [Suspect]
     Active Substance: PACLITAXEL
     Dosage: 200 MG, UNKNOWN
     Route: 065
     Dates: start: 20190802
  3. CARBOPLATIN. [Suspect]
     Active Substance: CARBOPLATIN
     Indication: NON-SMALL CELL LUNG CANCER
     Dosage: 330 MG, UNK
     Route: 065
     Dates: start: 20190627
  4. PEMETREXED. [Suspect]
     Active Substance: PEMETREXED
     Indication: SQUAMOUS CELL CARCINOMA OF LUNG
  5. PEMETREXED. [Suspect]
     Active Substance: PEMETREXED
     Indication: NON-SMALL CELL LUNG CANCER
     Dosage: UNK UNK, UNKNOWN
     Route: 065
  6. KEYTRUDA [Suspect]
     Active Substance: PEMBROLIZUMAB
     Indication: NON-SMALL CELL LUNG CANCER
     Dosage: 180 MG, BID
     Route: 065
     Dates: start: 20190627
  7. KEYTRUDA [Suspect]
     Active Substance: PEMBROLIZUMAB
     Indication: SQUAMOUS CELL CARCINOMA OF LUNG
     Dosage: 180, BID
     Route: 065
     Dates: start: 20190802
  8. CARBOPLATIN. [Suspect]
     Active Substance: CARBOPLATIN
     Indication: SQUAMOUS CELL CARCINOMA OF LUNG
     Dosage: 330 MG, UNK
     Route: 065
     Dates: start: 20190802

REACTIONS (7)
  - Toxic epidermal necrolysis [Fatal]
  - Scab [Fatal]
  - Cheilitis [Fatal]
  - Rash [Fatal]
  - Staphylococcal infection [Fatal]
  - Off label use [Unknown]
  - Epidermolysis [Fatal]
